FAERS Safety Report 7415326-7 (Version None)
Quarter: 2011Q2

REPORT INFORMATION
  Report Type: 
  Country: None (occurrence: None)
  Receive Date: 20110414
  Receipt Date: 20110408
  Transmission Date: 20111010
  Serious: Yes (Hospitalization)
  Sender: FDA-Public Use
  Company Number: A0857141A

PATIENT
  Age: 61 Year
  Sex: Female
  Weight: 72.3 kg

DRUGS (14)
  1. ZYPREXA [Concomitant]
  2. NORVASC [Concomitant]
  3. PREMARIN [Concomitant]
  4. ALBUTEROL [Concomitant]
  5. ASPIRIN [Concomitant]
  6. TUMS [Concomitant]
  7. TOPROL-XL [Concomitant]
  8. LASIX [Concomitant]
  9. ACETAMINOPHEN [Concomitant]
  10. AVANDIA [Suspect]
     Indication: DIABETES MELLITUS
     Dosage: 8MG PER DAY
     Route: 048
     Dates: start: 19990501, end: 20030501
  11. LIPITOR [Concomitant]
  12. WELLBUTRIN [Concomitant]
  13. NITROGLYCERIN [Concomitant]
     Route: 060
  14. MOM [Concomitant]

REACTIONS (10)
  - CARDIAC FAILURE CONGESTIVE [None]
  - CORONARY ARTERY DISEASE [None]
  - RENAL FAILURE [None]
  - HYPOXIA [None]
  - CARDIAC ARREST [None]
  - ISCHAEMIC CARDIOMYOPATHY [None]
  - ACUTE PULMONARY OEDEMA [None]
  - MYOCARDIAL INFARCTION [None]
  - RESPIRATORY ARREST [None]
  - VENTRICULAR TACHYCARDIA [None]
